FAERS Safety Report 5727259-2 (Version None)
Quarter: 2008Q2

REPORT INFORMATION
  Report Type: 
  Country: None (occurrence: None)
  Receive Date: 20080505
  Receipt Date: 20080422
  Transmission Date: 20081010
  Serious: Yes (Other)
  Sender: FDA-Public Use
  Company Number: US-BAYER-200816272NA

PATIENT
  Age: 51 Year
  Sex: Female
  Weight: 55 kg

DRUGS (7)
  1. AVELOX [Suspect]
     Indication: DRUG USE FOR UNKNOWN INDICATION
     Dosage: TOTAL DAILY DOSE: 400 MG  UNIT DOSE: 400 MG
     Route: 042
     Dates: start: 20080228, end: 20080229
  2. HEPARIN [Concomitant]
     Dosage: TOTAL DAILY DOSE: 10000 U
     Route: 058
  3. PEPCID [Concomitant]
     Dosage: TOTAL DAILY DOSE: 40 MG
     Route: 048
  4. TORADOL [Concomitant]
  5. DILAUDID [Concomitant]
  6. MILK OF MAGNESIA [Concomitant]
  7. ZOFRAN [Concomitant]

REACTIONS (1)
  - THROMBOCYTHAEMIA [None]
